FAERS Safety Report 5140462-8 (Version None)
Quarter: 2006Q4

REPORT INFORMATION
  Report Type: 
  Country: None (occurrence: None)
  Receive Date: 20061025
  Receipt Date: 20061017
  Transmission Date: 20070319
  Serious: Yes (Hospitalization)
  Sender: FDA-Public Use
  Company Number: 2006127189

PATIENT
  Sex: Male

DRUGS (1)
  1. SALAZOPYRIN (SULFASALAZINE) [Suspect]
     Indication: COLITIS ULCERATIVE
     Dosage: ORAL
     Route: 048

REACTIONS (1)
  - DYSPNOEA [None]
